FAERS Safety Report 6935307-7 (Version None)
Quarter: 2010Q3

REPORT INFORMATION
  Report Type: 
  Country: None (occurrence: None)
  Receive Date: 20100822
  Receipt Date: 20100722
  Transmission Date: 20110219
  Serious: Yes (Other)
  Sender: FDA-Public Use
  Company Number: PHEH2008US04440

PATIENT
  Sex: Female

DRUGS (25)
  1. ZOMETA [Suspect]
     Indication: MULTIPLE MYELOMA
     Dosage: UNK
     Dates: start: 20020101, end: 20040101
  2. CALCIUM [Concomitant]
     Indication: BONE DENSITY DECREASED
     Dosage: UNK
  3. ATENOLOL [Concomitant]
     Indication: HYPERTENSION
  4. LESCOL [Concomitant]
     Indication: BLOOD CHOLESTEROL
  5. TAXOTERE [Concomitant]
     Dosage: UNK
     Dates: start: 20000201
  6. AREDIA [Concomitant]
     Dosage: UNK
  7. HERCEPTIN [Concomitant]
     Dosage: UNK
  8. VIOXX [Concomitant]
     Dosage: UNK
  9. MOTRIN [Concomitant]
     Dosage: UNK
  10. STEROIDS NOS [Concomitant]
     Dosage: UNK
  11. ROCEPHIN [Concomitant]
  12. BACTRIM [Concomitant]
  13. DIOVAN [Concomitant]
  14. WARFARIN [Concomitant]
  15. CALCIUM WITH VITAMIN D [Concomitant]
  16. COUMADIN [Concomitant]
  17. ALLOPURINOL [Concomitant]
  18. ADVIL LIQUI-GELS [Concomitant]
  19. ACETAMINOPHEN [Concomitant]
  20. DIOVAN HCT [Concomitant]
  21. LESCOL XL [Concomitant]
  22. EVISTA [Concomitant]
  23. VINCRISTINE [Concomitant]
  24. ADRIAMYCIN PFS [Concomitant]
  25. DEXAMETHASONE [Concomitant]

REACTIONS (43)
  - ANHEDONIA [None]
  - ANXIETY [None]
  - ARTHROPOD BITE [None]
  - ATELECTASIS [None]
  - BLOOD IMMUNOGLOBULIN A DECREASED [None]
  - BLOOD IMMUNOGLOBULIN M DECREASED [None]
  - BONE DISORDER [None]
  - BREAST HYPERPLASIA [None]
  - BREATH ODOUR [None]
  - CERVICAL DYSPLASIA [None]
  - CERVICITIS [None]
  - COMPRESSION FRACTURE [None]
  - DEBRIDEMENT [None]
  - DISCOMFORT [None]
  - EMOTIONAL DISTRESS [None]
  - EPISTAXIS [None]
  - ERYTHEMA [None]
  - FEBRILE NEUTROPENIA [None]
  - GINGIVITIS [None]
  - HYPOAESTHESIA ORAL [None]
  - HYPOPHAGIA [None]
  - INJURY [None]
  - LIFE EXPECTANCY SHORTENED [None]
  - LOOSE TOOTH [None]
  - MUSCULOSKELETAL DISCOMFORT [None]
  - NASAL POLYPS [None]
  - ORAL SURGERY [None]
  - OSTEOMYELITIS [None]
  - OSTEONECROSIS OF JAW [None]
  - OSTEOPENIA [None]
  - PAIN [None]
  - PAIN IN JAW [None]
  - PAROTID GLAND ENLARGEMENT [None]
  - PHYSICAL DISABILITY [None]
  - POLYPECTOMY [None]
  - RASH [None]
  - ROAD TRAFFIC ACCIDENT [None]
  - SCAR [None]
  - SOFT TISSUE INJURY [None]
  - STEM CELL TRANSPLANT [None]
  - SWELLING [None]
  - TOOTH EXTRACTION [None]
  - WOUND DEHISCENCE [None]
